FAERS Safety Report 6867397-4 (Version None)
Quarter: 2010Q3

REPORT INFORMATION
  Report Type: 
  Country: None (occurrence: None)
  Receive Date: 20100722
  Receipt Date: 20100715
  Transmission Date: 20110219
  Serious: Yes (Hospitalization)
  Sender: FDA-Public Use
  Company Number: US-SANOFI-AVENTIS-2010SA041879

PATIENT
  Age: 87 Year
  Sex: Male

DRUGS (2)
  1. LANTUS [Suspect]
     Indication: TYPE 2 DIABETES MELLITUS
     Dosage: SLIDING SCALE
     Route: 058
  2. OPTICLICK [Suspect]

REACTIONS (4)
  - BLOOD SODIUM DECREASED [None]
  - DECUBITUS ULCER [None]
  - DEHYDRATION [None]
  - DYSURIA [None]
